FAERS Safety Report 18726489 (Version 1)
Quarter: 2021Q1

REPORT INFORMATION
  Report Type: Report from Study
  Country: None (occurrence: US)
  Receive Date: 20210112
  Receipt Date: 20210112
  Transmission Date: 20210419
  Serious: Yes (Hospitalization)
  Sender: FDA-Public Use
  Company Number: US-ABBVIE-21K-163-3723351-00

PATIENT
  Sex: Female

DRUGS (5)
  1. HUMIRA [Suspect]
     Active Substance: ADALIMUMAB
     Route: 058
     Dates: start: 202006
  2. HUMIRA [Suspect]
     Active Substance: ADALIMUMAB
     Route: 058
     Dates: start: 2020, end: 2020
  3. PAROXETINE. [Concomitant]
     Active Substance: PAROXETINE
     Indication: PREMENSTRUAL DYSPHORIC DISORDER
  4. HUMIRA [Suspect]
     Active Substance: ADALIMUMAB
     Indication: RHEUMATOID ARTHRITIS
     Route: 058
     Dates: end: 2020
  5. HUMIRA [Suspect]
     Active Substance: ADALIMUMAB
     Route: 058
     Dates: start: 2020, end: 2020

REACTIONS (13)
  - Swelling [Recovering/Resolving]
  - Pain in extremity [Recovering/Resolving]
  - Emphysema [Not Recovered/Not Resolved]
  - Foot deformity [Recovering/Resolving]
  - Chronic obstructive pulmonary disease [Recovered/Resolved]
  - Hypertension [Not Recovered/Not Resolved]
  - Angina pectoris [Recovered/Resolved]
  - Chest discomfort [Recovering/Resolving]
  - Chronic obstructive pulmonary disease [Not Recovered/Not Resolved]
  - Bronchitis [Not Recovered/Not Resolved]
  - Cardiac disorder [Unknown]
  - Traumatic lung injury [Not Recovered/Not Resolved]
  - Pneumonia [Recovering/Resolving]

NARRATIVE: CASE EVENT DATE: 2010
